FAERS Safety Report 8336105-2 (Version None)
Quarter: 2012Q1

REPORT INFORMATION
  Report Type: 
  Country: None (occurrence: None)
  Receive Date: 20120329
  Receipt Date: 20090128
  Transmission Date: 20120608
  Serious: Yes (Other)
  Sender: FDA-Public Use
  Company Number: PHEH2009US01248

PATIENT
  Age: 88 Year
  Sex: Female

DRUGS (2)
  1. EXELON [Suspect]
     Dosage: 4.6 MG, UNK, TRANSDERMAL
     Route: 062
  2. MIRAPEX [Suspect]

REACTIONS (1)
  - HALLUCINATION [None]
